FAERS Safety Report 22312198 (Version 2)
Quarter: 2023Q2

REPORT INFORMATION
  Report Type: Report from Study
  Country: GR (occurrence: GR)
  Receive Date: 20230512
  Receipt Date: 20230621
  Transmission Date: 20230722
  Serious: Yes (Hospitalization, Other)
  Sender: FDA-Public Use
  Company Number: GR-ABBVIE-4763938

PATIENT
  Sex: Female

DRUGS (2)
  1. CARBIDOPA\LEVODOPA [Suspect]
     Active Substance: CARBIDOPA\LEVODOPA
     Indication: Parkinson^s disease
     Dosage: CONTINUOUS RATE: 4.4ML/H; EXTRA DOSE: 2.0ML (24HOUR ADMINISTRATION))
     Route: 050
     Dates: start: 20191029
  2. CARBIDOPA\LEVODOPA [Suspect]
     Active Substance: CARBIDOPA\LEVODOPA
     Dosage: MORNING DOSE: 12.0ML(NOT ADMINISTRATED);CONTINUOUS RATE: 4.4ML/H; EXTRA DOSE: 2.0ML
     Route: 050

REACTIONS (2)
  - Pancreatic carcinoma [Not Recovered/Not Resolved]
  - Stoma site hypergranulation [Not Recovered/Not Resolved]
